FAERS Safety Report 9838880 (Version 1)
Quarter: 2014Q1

REPORT INFORMATION
  Report Type: Spontaneous
  Country: US (occurrence: None)
  Receive Date: 20140121
  Receipt Date: 20140121
  Transmission Date: 20141002
  Serious: Yes (Death, Hospitalization)
  Sender: FDA-Public Use
  Company Number: None

PATIENT
  Age: 63 Year
  Sex: Male
  Weight: 79.8 kg

DRUGS (2)
  1. CYTARABINE [Suspect]
     Dates: end: 20131218
  2. DAUNORUBICIN [Suspect]
     Dates: end: 20131214

REACTIONS (3)
  - Sepsis [None]
  - Aspergillus infection [None]
  - Renal failure [None]
